FAERS Safety Report 8782774 (Version 1)
Quarter: 2012Q4

REPORT INFORMATION
  Report Type: Report from Study
  Country: US (occurrence: US)
  Receive Date: 20120913
  Receipt Date: 20120913
  Transmission Date: 20130627
  Serious: Yes (Hospitalization, Other)
  Sender: FDA-Public Use
  Company Number: US-US-EMD SERONO, INC.-7156637

PATIENT
  Age: 34 Year
  Sex: Male

DRUGS (5)
  1. REBIF [Suspect]
     Indication: MULTIPLE SCLEROSIS
     Route: 058
     Dates: start: 20120810
  2. REBIF [Suspect]
     Route: 058
     Dates: start: 20120821
  3. EFFEXOR [Concomitant]
     Indication: DEPRESSION
  4. EFFEXOR [Concomitant]
  5. BACLOFEN [Concomitant]
     Indication: MUSCLE SPASMS

REACTIONS (9)
  - Dehydration [Not Recovered/Not Resolved]
  - Lethargy [Not Recovered/Not Resolved]
  - Depression [Not Recovered/Not Resolved]
  - Mood swings [Not Recovered/Not Resolved]
  - Central nervous system lesion [Not Recovered/Not Resolved]
  - Dysphagia [Not Recovered/Not Resolved]
  - Movement disorder [Unknown]
  - Feeling hot [Unknown]
  - Influenza like illness [Unknown]
